FAERS Safety Report 10174951 (Version 1)
Quarter: 2014Q2

REPORT INFORMATION
  Report Type: Spontaneous
  Country: JP (occurrence: JP)
  Receive Date: 20140515
  Receipt Date: 20140515
  Transmission Date: 20141212
  Serious: Yes (Hospitalization)
  Sender: FDA-Public Use
  Company Number: JP-009507513-1405JPN006232

PATIENT
  Sex: Female

DRUGS (5)
  1. FOSAMAC TABLETS-5 [Suspect]
     Dosage: DAILY DOSAGE UNKNOWN
     Route: 048
     Dates: start: 2004, end: 2009
  2. FOSAMAC TABLETS 35MG [Suspect]
     Dosage: 35 MG, QW
     Route: 048
     Dates: start: 201402
  3. PREDONINE [Suspect]
     Dosage: DAILY DOSAGE UNKNOWN
     Route: 065
  4. ASPARA CA [Concomitant]
     Dosage: DAILY DOSE UNKNOWN/DAILY DOSAGE UNKNOWN
     Route: 048
  5. ADRENAL [Concomitant]
     Dosage: DAILY DOSAGE UNKNOWN
     Route: 048

REACTIONS (8)
  - Tooth abscess [Unknown]
  - Osteolysis [Unknown]
  - Tooth disorder [Unknown]
  - Temporomandibular joint syndrome [Unknown]
  - Cardiac disorder [Unknown]
  - Thrombosis [Unknown]
  - Diabetes mellitus [Unknown]
  - Tooth disorder [Unknown]
